FAERS Safety Report 5313142-3 (Version None)
Quarter: 2007Q2

REPORT INFORMATION
  Report Type: 
  Country: None (occurrence: None)
  Receive Date: 20070424
  Receipt Date: 20070413
  Transmission Date: 20071010
  Serious: Yes (Hospitalization)
  Sender: FDA-Public Use
  Company Number: OSCN-PR-0704S-0170

PATIENT
  Age: 68 Year
  Sex: Male

DRUGS (1)
  1. OMNISCAN [Suspect]
     Indication: DRUG USE FOR UNKNOWN INDICATION
     Dosage: SINGLE DOSE, I.V.
     Route: 042
     Dates: start: 20070404, end: 20070404

REACTIONS (3)
  - BLOOD BILIRUBIN INCREASED [None]
  - HAEMOLYSIS [None]
  - LIVER FUNCTION TEST ABNORMAL [None]
